FAERS Safety Report 4678737-9 (Version None)
Quarter: 2005Q2

REPORT INFORMATION
  Report Type: 
  Country: None (occurrence: None)
  Receive Date: 20050531
  Receipt Date: 20050518
  Transmission Date: 20051028
  Serious: Yes (Hospitalization)
  Sender: FDA-Public Use
  Company Number: HQWYE793719MAY05

PATIENT
  Age: 84 Year
  Sex: Female

DRUGS (8)
  1. PROTONIX [Suspect]
  2. VERAPAMIL [Concomitant]
  3. ZOLOFT [Concomitant]
  4. PREDNISONE (PREDNISONE) [Concomitant]
  5. OXYCODONE (OXYCODONE) [Concomitant]
  6. NEURONTIN [Concomitant]
  7. LASIX [Concomitant]
  8. IRON (IRON) [Concomitant]

REACTIONS (1)
  - PANNICULITIS [None]
